FAERS Safety Report 20335610 (Version 3)
Quarter: 2022Q3

REPORT INFORMATION
  Report Type: Spontaneous
  Country: BR (occurrence: BR)
  Receive Date: 20220114
  Receipt Date: 20220812
  Transmission Date: 20221027
  Serious: Yes (Hospitalization, Other)
  Sender: FDA-Public Use
  Company Number: BR-PFIZER INC-202200019638

PATIENT
  Age: 54 Year
  Sex: Female

DRUGS (4)
  1. ALPRAZOLAM [Suspect]
     Active Substance: ALPRAZOLAM
     Indication: Depression
     Dosage: 2 MG
     Dates: start: 2000
  2. ALPRAZOLAM [Suspect]
     Active Substance: ALPRAZOLAM
     Indication: Insomnia
     Dosage: 90 MG, DAILY (45 TABLETS OF FRONTAL 2 MG IN A SINGLE DAY)
  3. CYMBALTA [Concomitant]
     Active Substance: DULOXETINE HYDROCHLORIDE
     Indication: Depression
     Dosage: UNK
  4. ZOLOFT [Concomitant]
     Active Substance: SERTRALINE HYDROCHLORIDE
     Dosage: UNK

REACTIONS (9)
  - Suicide attempt [Recovered/Resolved]
  - Laryngeal oedema [Unknown]
  - Off label use [Unknown]
  - Drug ineffective for unapproved indication [Unknown]
  - Therapeutic product effect decreased [Unknown]
  - Insomnia [Not Recovered/Not Resolved]
  - Intentional overdose [Unknown]
  - Suspected counterfeit product [Unknown]
  - Product use issue [Unknown]

NARRATIVE: CASE EVENT DATE: 20000101
